FAERS Safety Report 20700446 (Version 1)
Quarter: 2022Q2

REPORT INFORMATION
  Report Type: Spontaneous
  Country: US (occurrence: None)
  Receive Date: 20220411
  Receipt Date: 20220411
  Transmission Date: 20220721
  Serious: Yes (Hospitalization)
  Sender: FDA-Public Use
  Company Number: None

PATIENT
  Age: 75 Year
  Sex: Female
  Weight: 56.79 kg

DRUGS (20)
  1. EVEROLIMUS [Suspect]
     Active Substance: EVEROLIMUS
     Indication: Breast cancer female
     Dosage: FREQUENCY : DAILY;?
     Route: 048
     Dates: start: 202202
  2. EXEMESTANE [Suspect]
     Active Substance: EXEMESTANE
     Indication: Breast cancer female
     Dosage: FREQUENCY : DAILY;?
     Route: 048
     Dates: start: 202202
  3. ACETAMINOPHEN [Concomitant]
     Active Substance: ACETAMINOPHEN
  4. AROMASIN [Concomitant]
     Active Substance: EXEMESTANE
  5. ASCORBIC ACID [Concomitant]
     Active Substance: ASCORBIC ACID
  6. ASPIRIN O [Concomitant]
  7. CALTRATE 600+D [Concomitant]
  8. CEFDINIR [Concomitant]
     Active Substance: CEFDINIR
  9. COZAAR [Concomitant]
     Active Substance: LOSARTAN POTASSIUM
  10. DEXAMETHASONE [Concomitant]
     Active Substance: DEXAMETHASONE
  11. DIPHENHYDRAMINE [Concomitant]
     Active Substance: DIPHENHYDRAMINE
  12. DOXYCYCLINE [Concomitant]
     Active Substance: DOXYCYCLINE
  13. KENALOG [Concomitant]
     Active Substance: TRIAMCINOLONE ACETONIDE
  14. LIDOCAINE [Concomitant]
     Active Substance: LIDOCAINE
  15. MEGACE ES [Concomitant]
     Active Substance: MEGESTROL ACETATE
  16. VITAMINS [Concomitant]
     Active Substance: VITAMINS
  17. NORVASC [Concomitant]
     Active Substance: AMLODIPINE BESYLATE
  18. NYSTATIN MOUTH/THROAT SUSPENSION [Concomitant]
  19. POTASSIUM CHLORIDE [Concomitant]
     Active Substance: POTASSIUM CHLORIDE
  20. XGEVA [Concomitant]
     Active Substance: DENOSUMAB

REACTIONS (1)
  - Pneumonia [None]
